FAERS Safety Report 6071773-X (Version None)
Quarter: 2009Q1

REPORT INFORMATION
  Report Type: 
  Country: None (occurrence: None)
  Receive Date: 20090210
  Receipt Date: 20090109
  Transmission Date: 20090719
  Serious: No
  Sender: FDA-Public Use
  Company Number: US-BAYER-200910658NA

PATIENT
  Age: 47 Year
  Sex: Female

DRUGS (5)
  1. MIRENA [Suspect]
     Indication: MENORRHAGIA
     Route: 015
     Dates: start: 20081231
  2. LIPITOR [Concomitant]
  3. IRON [IRON] [Concomitant]
  4. CALCIUM +VIT D [Concomitant]
  5. ASCORBIC ACID [Concomitant]

REACTIONS (1)
  - DIZZINESS [None]
